FAERS Safety Report 9818316 (Version 7)
Quarter: 2019Q3

REPORT INFORMATION
  Report Type: Spontaneous
  Country: US (occurrence: US)
  Receive Date: 20140115
  Receipt Date: 20190904
  Transmission Date: 20191005
  Serious: Yes (Hospitalization)
  Sender: FDA-Public Use
  Company Number: US-PFIZER INC-2014006562

PATIENT
  Age: 55 Year
  Sex: Male
  Weight: 96 kg

DRUGS (32)
  1. PRINIVIL [Concomitant]
     Active Substance: LISINOPRIL
     Dosage: 10 MG, DAILY
     Route: 048
  2. LISINOPRIL. [Concomitant]
     Active Substance: LISINOPRIL
     Indication: BLOOD PRESSURE ABNORMAL
     Dosage: UNK
  3. VIAGRA [Suspect]
     Active Substance: SILDENAFIL CITRATE
     Indication: ERECTILE DYSFUNCTION
     Dosage: 100 MG, ONE TABLET BY MOUTH ONE HOUR BEFORE NEEDED, UP TO 1 TABLET DAILY
     Route: 048
  4. CELEXA [Concomitant]
     Active Substance: CITALOPRAM HYDROBROMIDE
     Dosage: 20 MG, UNK
  5. NEURONTIN [Concomitant]
     Active Substance: GABAPENTIN
     Dosage: 800 MG, 2X/DAY
     Route: 048
  6. LACTULOSE. [Concomitant]
     Active Substance: LACTULOSE
     Dosage: 15 ML, 1X/DAY (NIGHTLY AT BEDTIME)
     Route: 048
  7. GLUMETZA [Concomitant]
     Active Substance: METFORMIN HYDROCHLORIDE
     Dosage: 500 MG, 2X/DAY (WITH MEALS)
     Route: 048
  8. MYCOSTATIN [Concomitant]
     Active Substance: NYSTATIN
     Dosage: UNK, 2X/DAY (POWDER; APPLY TOPICALLY TWICE DAILY TO FEET)
     Route: 061
  9. RISPERDAL [Concomitant]
     Active Substance: RISPERIDONE
     Indication: MENTAL DISORDER
     Dosage: 0.5 MG, UNK
  10. CELEXA [Concomitant]
     Active Substance: CITALOPRAM HYDROBROMIDE
     Dosage: 40 MG, DAILY (4 TABLETS)
     Route: 048
  11. ZESTRIL [Concomitant]
     Active Substance: LISINOPRIL
     Dosage: 10 MG, DAILY
     Route: 048
  12. ROBAXIN [Concomitant]
     Active Substance: METHOCARBAMOL
     Dosage: 750 MG, 3X/DAY
     Route: 048
  13. OXYCODONE [Concomitant]
     Active Substance: OXYCODONE
     Indication: PAIN
     Dosage: 5 MG, UNK
  14. PROAIR HFA [Concomitant]
     Active Substance: ALBUTEROL SULFATE
     Dosage: UNK, AS NEEDED (INHALE 2 PUFFS BY MOUTH EVERY 6 HOURS)
     Route: 048
  15. LOTRIMIN [Concomitant]
     Active Substance: CLOTRIMAZOLE
     Dosage: UNK, 2X/DAY (APPLY TOPICALLY 2 TIMES DAILY TO BILATERAL FOOT)
     Route: 061
  16. LOPRESSOR [Concomitant]
     Active Substance: METOPROLOL TARTRATE
     Dosage: 25 MG, 2X/DAY
     Route: 048
  17. ZOCOR [Concomitant]
     Active Substance: SIMVASTATIN
     Dosage: 20 MG, 1X/DAY (NIGHTLY AT  BEDTIME)
     Route: 048
  18. GABAPENTIN. [Concomitant]
     Active Substance: GABAPENTIN
     Dosage: 800 MG, UNK
  19. ASPIRIN. [Concomitant]
     Active Substance: ASPIRIN
     Dosage: 81 MG, DAILY
     Route: 048
  20. GLUCOPHAGE [Concomitant]
     Active Substance: METFORMIN HYDROCHLORIDE
     Dosage: 500 MG, UNK
  21. PROTONIX [Concomitant]
     Active Substance: PANTOPRAZOLE SODIUM
     Indication: GASTRIC DISORDER
     Dosage: 40 MG, DAILY (30 MIN BEFORE BREAKFAST)
     Route: 048
  22. FENTANYL TRANSDERMAL SYSTEM [Concomitant]
     Active Substance: FENTANYL
     Dosage: 25 MG, UNK
  23. KEFLEX [Concomitant]
     Active Substance: CEPHALEXIN
     Dosage: 500 MG, 2X/DAY
     Route: 048
  24. VOLTAREN [Concomitant]
     Active Substance: DICLOFENAC SODIUM
     Dosage: UNK (APP EXT AA QID UTD)
     Route: 061
  25. NORCO [Concomitant]
     Active Substance: ACETAMINOPHEN\HYDROCODONE BITARTRATE
     Dosage: UNK UNK, AS NEEDED : TK 1 T PO TLD
     Route: 048
  26. ADVIL [Concomitant]
     Active Substance: IBUPROFEN
     Dosage: 800 MG, 3X/DAY
     Route: 048
  27. MOTRIN [Concomitant]
     Active Substance: IBUPROFEN
     Dosage: 800 MG, 3X/DAY
     Route: 048
  28. XALATAN [Concomitant]
     Active Substance: LATANOPROST
     Dosage: UNK, 1X/DAY (PLACE 1 DROP INTO BOTH EYES NIGHTLY AT BEDTIME)
  29. METFORMIN [Concomitant]
     Active Substance: METFORMIN HYDROCHLORIDE
     Dosage: 1000 MG, UNK
  30. SIMVASTATIN. [Concomitant]
     Active Substance: SIMVASTATIN
     Indication: BLOOD CHOLESTEROL INCREASED
     Dosage: UNK
  31. LIORESAL [Concomitant]
     Active Substance: BACLOFEN
     Dosage: 10 MG, UNK (TK 1 T PO WF OR MILK TID)
     Route: 048
  32. PENLAC [Concomitant]
     Active Substance: CICLOPIROX
     Dosage: UNK, DAILY (APPLY TO MYCOTIC TOE NAILS DAILY. REMOVE WITH ALCOHOL SWAB ONCE A WEEK.)

REACTIONS (4)
  - Headache [Unknown]
  - Nasopharyngitis [Not Recovered/Not Resolved]
  - Blood count abnormal [Unknown]
  - Fatigue [Unknown]
